FAERS Safety Report 8608123-8 (Version None)
Quarter: 2012Q3

REPORT INFORMATION
  Report Type: 
  Country: None (occurrence: None)
  Receive Date: 20120821
  Receipt Date: 20120815
  Transmission Date: 20120928
  Serious: Yes (Hospitalization, Other)
  Sender: FDA-Public Use
  Company Number: PHHY2012EC008266

PATIENT
  Sex: Female

DRUGS (2)
  1. DIOVAN HCT [Suspect]
     Dosage: 1 DF (80/12.5 MG), UNK
     Dates: end: 20120801
  2. DIOVAN HCT [Suspect]
     Indication: HYPERTENSION
     Dosage: 1 DF DAILY (160 MG VALS AND 12.5 MG HYDR)
     Route: 048
     Dates: start: 20090101

REACTIONS (3)
  - ABDOMINAL PAIN [None]
  - COLON CANCER [None]
  - ABDOMINAL DISTENSION [None]
